FAERS Safety Report 13442953 (Version 1)
Quarter: 2017Q2

REPORT INFORMATION
  Report Type: Spontaneous
  Country: US (occurrence: US)
  Receive Date: 20170413
  Receipt Date: 20170413
  Transmission Date: 20170830
  Serious: No
  Sender: FDA-Public Use
  Company Number: None

PATIENT
  Age: 55 Year
  Sex: Female

DRUGS (3)
  1. SUTENT [Suspect]
     Active Substance: SUNITINIB MALATE
     Indication: HYPOTHYROIDISM
  2. SUTENT [Suspect]
     Active Substance: SUNITINIB MALATE
     Indication: BENIGN RENAL NEOPLASM
  3. SUTENT [Suspect]
     Active Substance: SUNITINIB MALATE
     Indication: HYPERLIPIDAEMIA

REACTIONS (1)
  - Thyroid disorder [None]

NARRATIVE: CASE EVENT DATE: 20170401
